FAERS Safety Report 5274951-2 (Version None)
Quarter: 2007Q1

REPORT INFORMATION
  Report Type: 
  Country: None (occurrence: None)
  Receive Date: 20061207
  Receipt Date: 20061004
  Transmission Date: 20070707
  Serious: No
  Sender: FDA-Public Use
  Company Number: 36649

PATIENT

DRUGS (1)
  1. NEVANAC [Suspect]
     Indication: EYE PAIN

REACTIONS (1)
  - KERATITIS [None]
